FAERS Safety Report 8579007 (Version 2)
Quarter: 2012Q4

REPORT INFORMATION
  Report Type: 
  Country: FR (occurrence: FR)
  Receive Date: 20120524
  Receipt Date: 20120827
  Transmission Date: 20130627
  Serious: Yes (Other)
  Sender: FDA-Public Use
  Company Number: FR-ELI_LILLY_AND_COMPANY-FR201205005175

PATIENT
  Age: 40 Year
  Sex: Female
  Weight: 76 kg

DRUGS (4)
  1. CYMBALTA [Suspect]
     Indication: DEPRESSION
     Dosage: 60 mg, qd
     Route: 048
     Dates: start: 201111, end: 20120510
  2. CYMBALTA [Suspect]
     Dosage: 30 mg, qd
     Route: 048
     Dates: start: 20120511, end: 20120615
  3. ANAFRANIL [Concomitant]
     Indication: BIPOLAR DISORDER
     Dosage: UNK, unknown
  4. DEPAKOTE [Concomitant]
     Indication: BIPOLAR DISORDER
     Dosage: UNK, unknown
     Dates: start: 2006

REACTIONS (2)
  - Pyrexia [Not Recovered/Not Resolved]
  - Arthralgia [Unknown]
